FAERS Safety Report 9029483 (Version 1)
Quarter: 2013Q1

REPORT INFORMATION
  Report Type: Spontaneous
  Country: US (occurrence: US)
  Receive Date: 20130124
  Receipt Date: 20130124
  Transmission Date: 20140127
  Serious: No
  Sender: FDA-Public Use
  Company Number: US-ASTRAZENECA-2013SE03568

PATIENT
  Sex: Female

DRUGS (2)
  1. NEXIUM [Suspect]
     Route: 048
  2. HYDROCODONE COUGH SYRUP [Concomitant]

REACTIONS (3)
  - Upper respiratory tract infection [Unknown]
  - Adverse event [Unknown]
  - Drug dose omission [Unknown]
